FAERS Safety Report 8019985-X (Version None)
Quarter: 2012Q1

REPORT INFORMATION
  Report Type: 
  Country: None (occurrence: None)
  Receive Date: 20120103
  Receipt Date: 20111227
  Transmission Date: 20120608
  Serious: Yes (Hospitalization)
  Sender: FDA-Public Use
  Company Number: US-JNJFOC-20111201254

PATIENT
  Sex: Male
  Weight: 90.72 kg

DRUGS (2)
  1. REMICADE [Suspect]
     Route: 042
     Dates: start: 20110101
  2. REMICADE [Suspect]
     Indication: RHEUMATOID ARTHRITIS
     Route: 042
     Dates: start: 20100101, end: 20110101

REACTIONS (10)
  - CEREBROVASCULAR ACCIDENT [None]
  - DYSPNOEA [None]
  - SENSORY DISTURBANCE [None]
  - AMNESIA [None]
  - VICTIM OF CRIME [None]
  - TRACHEAL INJURY [None]
  - SCAR [None]
  - DRUG INEFFECTIVE [None]
  - FACIAL BONES FRACTURE [None]
  - APHASIA [None]
